FAERS Safety Report 21388287 (Version 1)
Quarter: 2022Q3

REPORT INFORMATION
  Report Type: Report from Study
  Country: US (occurrence: US)
  Receive Date: 20220928
  Receipt Date: 20220928
  Transmission Date: 20221027
  Serious: Yes (Other)
  Sender: FDA-Public Use
  Company Number: US-PFIZER INC-PV202200070507

PATIENT
  Age: 65 Year
  Sex: Female

DRUGS (1)
  1. IBRANCE [Suspect]
     Active Substance: PALBOCICLIB
     Dosage: 125 MG, CYCLIC (21 DAYS ON/7 DAYS OFF)
     Dates: start: 20220707

REACTIONS (6)
  - Confusional state [Unknown]
  - Pyrexia [Unknown]
  - Chills [Unknown]
  - Dizziness [Unknown]
  - Dyspnoea [Unknown]
  - Chest pain [Unknown]
